FAERS Safety Report 4556048-X (Version None)
Quarter: 2005Q1

REPORT INFORMATION
  Report Type: 
  Country: None (occurrence: None)
  Receive Date: 20050119
  Receipt Date: 20041209
  Transmission Date: 20050727
  Serious: Yes (Hospitalization)
  Sender: FDA-Public Use
  Company Number: 387882

PATIENT
  Age: 68 Year
  Sex: Male

DRUGS (4)
  1. KREDEX [Suspect]
     Indication: CARDIAC VALVE DISEASE
     Route: 048
  2. CAPTOPRIL [Suspect]
     Indication: DRUG USE FOR UNKNOWN INDICATION
     Route: 065
  3. TAHOR [Concomitant]
     Route: 065
  4. SINTROM [Concomitant]
     Route: 065

REACTIONS (7)
  - ASTHENIA [None]
  - FATIGUE [None]
  - MALAISE [None]
  - SYNCOPE [None]
  - TACHYARRHYTHMIA [None]
  - VERTIGO [None]
  - VOMITING [None]
